FAERS Safety Report 26127993 (Version 1)
Quarter: 2025Q4

REPORT INFORMATION
  Report Type: Spontaneous
  Country: US (occurrence: US)
  Receive Date: 20251206
  Receipt Date: 20251206
  Transmission Date: 20260117
  Serious: Yes (Death, Hospitalization, Other)
  Sender: AMGEN
  Company Number: US-AMGEN-USASP2025235881

PATIENT

DRUGS (1)
  1. INFLIXIMAB [Suspect]
     Active Substance: INFLIXIMAB
     Indication: Toxicity to various agents
     Dosage: UNK
     Route: 065

REACTIONS (7)
  - Death [Fatal]
  - Abortion induced [Unknown]
  - Caesarean section [Unknown]
  - Abortion spontaneous [Unknown]
  - Melanoma recurrent [Unknown]
  - Maternal exposure during pregnancy [Unknown]
  - Off label use [Unknown]
